FAERS Safety Report 6975410-9 (Version None)
Quarter: 2010Q3

REPORT INFORMATION
  Report Type: 
  Country: None (occurrence: None)
  Receive Date: 20100910
  Receipt Date: 20090325
  Transmission Date: 20110219
  Serious: No
  Sender: FDA-Public Use
  Company Number: US-WYE-H08712809

PATIENT
  Sex: Female

DRUGS (3)
  1. PRISTIQ [Suspect]
     Indication: DEPRESSION
     Route: 048
     Dates: start: 20090316, end: 20090322
  2. PRISTIQ [Suspect]
     Route: 048
     Dates: start: 20090323
  3. SYNTHROID [Concomitant]

REACTIONS (2)
  - DECREASED APPETITE [None]
  - DRY MOUTH [None]
